FAERS Safety Report 9329958 (Version 1)
Quarter: 2013Q2

REPORT INFORMATION
  Report Type: Spontaneous
  Country: SE (occurrence: SE)
  Receive Date: 20130604
  Receipt Date: 20130604
  Transmission Date: 20140414
  Serious: Yes (Hospitalization)
  Sender: FDA-Public Use
  Company Number: SE-UCBSA-087106

PATIENT
  Age: 73 Year
  Sex: Female

DRUGS (2)
  1. KEPPRA [Suspect]
     Indication: CONVULSION
     Route: 048
     Dates: start: 201301
  2. ARIMIDEX [Concomitant]

REACTIONS (3)
  - Pyrexia [Unknown]
  - Fatigue [Unknown]
  - Apathy [Unknown]
